FAERS Safety Report 4716289-5 (Version None)
Quarter: 2005Q2

REPORT INFORMATION
  Report Type: 
  Country: None (occurrence: None)
  Receive Date: 20050630
  Receipt Date: 20050110
  Transmission Date: 20051028
  Serious: Yes (Hospitalization, Other)
  Sender: FDA-Public Use
  Company Number: US_0501110059

PATIENT
  Age: 54 Year
  Sex: Male
  Weight: 59 kg

DRUGS (2)
  1. INSULIN [Suspect]
     Indication: DIABETES MELLITUS
  2. HUMALOG [Suspect]
     Indication: DIABETES MELLITUS
     Dates: start: 20000101

REACTIONS (6)
  - LOSS OF CONSCIOUSNESS [None]
  - MULTIPLE ORGAN TRANSPLANT REJECTION [None]
  - MUSCLE ATROPHY [None]
  - PANCREAS TRANSPLANT [None]
  - RENAL TRANSPLANT [None]
  - TRANSPLANT REJECTION [None]
